FAERS Safety Report 4971081-1 (Version None)
Quarter: 2006Q1

REPORT INFORMATION
  Report Type: 
  Country: None (occurrence: None)
  Receive Date: 20060207
  Receipt Date: 20050401
  Transmission Date: 20060701
  Serious: Yes (Hospitalization)
  Sender: FDA-Public Use
  Company Number: USA030946848

PATIENT
  Age: 74 Year
  Sex: Female
  Weight: 46 kg

DRUGS (15)
  1. FORTEO [Suspect]
     Indication: OSTEOPOROSIS
     Dosage: 20 UG DAY
     Dates: start: 20030819
  2. EVISTA [Suspect]
  3. SYNTHROID [Concomitant]
  4. NEXIUM [Concomitant]
  5. PROPECIA [Concomitant]
  6. CLARITIN [Concomitant]
  7. VITAMIN E [Concomitant]
  8. ASCORBIC ACID [Concomitant]
  9. ZINC [Concomitant]
  10. VITAMIN D [Concomitant]
  11. FOSAMAX [Concomitant]
  12. ACTONEL [Concomitant]
  13. AMOXICILLIN [Concomitant]
  14. COMBIPATCH [Concomitant]
  15. VITAMINS [Concomitant]

REACTIONS (15)
  - ARTHRALGIA [None]
  - CATARACT OPERATION [None]
  - FALL [None]
  - GASTRIC DISORDER [None]
  - HEADACHE [None]
  - INJECTION SITE ERYTHEMA [None]
  - INJECTION SITE HAEMORRHAGE [None]
  - LENS DISORDER [None]
  - MUSCLE SPASMS [None]
  - OEDEMA PERIPHERAL [None]
  - PAIN IN EXTREMITY [None]
  - THROMBOSIS [None]
  - URINARY BLADDER POLYP [None]
  - URINE ANALYSIS ABNORMAL [None]
  - VISION BLURRED [None]
